FAERS Safety Report 13438260 (Version 1)
Quarter: 2017Q2

REPORT INFORMATION
  Report Type: Spontaneous
  Country: US (occurrence: US)
  Receive Date: 20170413
  Receipt Date: 20170413
  Transmission Date: 20170830
  Serious: No
  Sender: FDA-Public Use
  Company Number: US-BAYER-2017-068300

PATIENT
  Age: 48 Year
  Sex: Female

DRUGS (1)
  1. BETASERON [Suspect]
     Active Substance: INTERFERON BETA-1B
     Indication: MULTIPLE SCLEROSIS
     Dosage: 1 ML, UNK
     Route: 058
     Dates: start: 2001

REACTIONS (7)
  - Groin pain [None]
  - Arthralgia [None]
  - Back pain [None]
  - Injection site pain [None]
  - Gait disturbance [None]
  - Musculoskeletal pain [None]
  - Lymphadenopathy [None]

NARRATIVE: CASE EVENT DATE: 2016
